FAERS Safety Report 13757713 (Version 2)
Quarter: 2017Q4

REPORT INFORMATION
  Report Type: Spontaneous
  Country: US (occurrence: US)
  Receive Date: 20170717
  Receipt Date: 20171115
  Transmission Date: 20180320
  Serious: No
  Sender: FDA-Public Use
  Company Number: US-BIOGEN-2017BI00430509

PATIENT
  Sex: Female

DRUGS (11)
  1. AMPYRA [Concomitant]
     Active Substance: DALFAMPRIDINE
     Indication: GAIT DISTURBANCE
     Route: 048
     Dates: start: 20150413, end: 20170822
  2. PROVIGIL [Concomitant]
     Active Substance: MODAFINIL
     Indication: PRODUCT USED FOR UNKNOWN INDICATION
     Route: 065
  3. REBIF [Concomitant]
     Active Substance: INTERFERON BETA-1A
     Indication: PRODUCT USED FOR UNKNOWN INDICATION
     Route: 065
  4. VITAMIN D3 [Concomitant]
     Active Substance: CHOLECALCIFEROL
     Indication: PRODUCT USED FOR UNKNOWN INDICATION
     Route: 065
  5. UNISOM SLEEPTABS [Concomitant]
     Active Substance: DOXYLAMINE SUCCINATE
     Indication: PRODUCT USED FOR UNKNOWN INDICATION
     Route: 065
  6. BETASERON [Concomitant]
     Active Substance: INTERFERON BETA-1B
     Indication: PRODUCT USED FOR UNKNOWN INDICATION
     Route: 065
  7. OMEGA 3 [Concomitant]
     Active Substance: OMEGA-3 FATTY ACIDS
     Indication: PRODUCT USED FOR UNKNOWN INDICATION
     Route: 065
  8. TYSABRI [Suspect]
     Active Substance: NATALIZUMAB
     Indication: PRODUCT USED FOR UNKNOWN INDICATION
     Dosage: OVER 1 HOUR INFUSION; 15 ML
     Route: 042
  9. AMPYRA [Concomitant]
     Active Substance: DALFAMPRIDINE
     Route: 048
  10. AMPYRA [Concomitant]
     Active Substance: DALFAMPRIDINE
     Route: 048
     Dates: end: 20170822
  11. VITAMIN D [Concomitant]
     Active Substance: CHOLECALCIFEROL
     Indication: PRODUCT USED FOR UNKNOWN INDICATION
     Route: 065

REACTIONS (22)
  - Extensor plantar response [Unknown]
  - Confusional state [Unknown]
  - Pyrexia [Unknown]
  - Cerebellar syndrome [Unknown]
  - Dyskinesia [Unknown]
  - Urinary tract infection [Unknown]
  - Pain [Unknown]
  - Hyporeflexia [Unknown]
  - Gait disturbance [Unknown]
  - Balance disorder [Unknown]
  - Energy increased [Unknown]
  - Anaemia [Unknown]
  - Dry mouth [Unknown]
  - Fall [Recovered/Resolved]
  - Ataxia [Unknown]
  - Constipation [Unknown]
  - Hypoaesthesia [Unknown]
  - Injection site reaction [Unknown]
  - Diarrhoea [Recovered/Resolved]
  - Musculoskeletal disorder [Unknown]
  - Mobility decreased [Unknown]
  - Asthenia [Unknown]

NARRATIVE: CASE EVENT DATE: 2015
